FAERS Safety Report 24227018 (Version 2)
Quarter: 2024Q3

REPORT INFORMATION
  Report Type: Report from Study
  Country: BG (occurrence: BG)
  Receive Date: 20240820
  Receipt Date: 20240905
  Transmission Date: 20241017
  Serious: No
  Sender: AKCEA THERAPEUTICS
  Company Number: BG-AKCEA THERAPEUTICS, INC.-2023IS001939

PATIENT

DRUGS (9)
  1. TEGSEDI [Suspect]
     Active Substance: INOTERSEN SODIUM
     Indication: Hereditary neuropathic amyloidosis
     Dosage: 284 MILLIGRAM, QW
     Route: 058
  2. TEGSEDI [Suspect]
     Active Substance: INOTERSEN SODIUM
     Dosage: 284 MILLIGRAM, QW
     Route: 058
  3. TEGSEDI [Suspect]
     Active Substance: INOTERSEN SODIUM
     Dosage: 284 MILLIGRAM, QW
     Route: 058
  4. TEGSEDI [Suspect]
     Active Substance: INOTERSEN SODIUM
     Dosage: 284 MILLIGRAM, QW
     Route: 058
     Dates: start: 20220301
  5. TEGSEDI [Suspect]
     Active Substance: INOTERSEN SODIUM
     Dosage: 284 MILLIGRAM, QW
     Route: 058
  6. ELIQUIS [Concomitant]
     Active Substance: APIXABAN
     Indication: Deep vein thrombosis
     Dosage: 2.5 MILLIGRAM 2 TIMES
     Route: 048
  7. RETINOL [Concomitant]
     Active Substance: RETINOL
     Indication: Vitamin supplementation
     Dosage: UNK, 1 TABLET QD
     Route: 048
  8. PREGABALIN [Concomitant]
     Active Substance: PREGABALIN
     Indication: Neuralgia
     Dosage: 75 MILLIGRAM, QD
     Route: 048
  9. TORSEMIDE [Concomitant]
     Active Substance: TORSEMIDE
     Indication: Oedema
     Dosage: 5 MILLIGRAM, QD, TABLET
     Route: 048

REACTIONS (12)
  - Haematoma [Recovered/Resolved]
  - Platelet count decreased [Not Recovered/Not Resolved]
  - Red cell distribution width decreased [Recovered/Resolved]
  - Platelet distribution width increased [Recovered/Resolved]
  - Platelet morphology abnormal [Recovered/Resolved]
  - Intentional product misuse [Recovered/Resolved]
  - Mean platelet volume increased [Recovered/Resolved]
  - Protein total increased [Unknown]
  - Creatinine urine decreased [Unknown]
  - Urine protein/creatinine ratio increased [Unknown]
  - Red cell distribution width increased [Recovered/Resolved]
  - Platelet distribution width increased [Unknown]

NARRATIVE: CASE EVENT DATE: 20230721
